FAERS Safety Report 23296656 (Version 2)
Quarter: 2023Q4

REPORT INFORMATION
  Report Type: Spontaneous
  Country: QA (occurrence: QA)
  Receive Date: 20231214
  Receipt Date: 20231229
  Transmission Date: 20240110
  Serious: Yes (Hospitalization, Other)
  Sender: FDA-Public Use
  Company Number: QA-Accord-394527

PATIENT
  Age: 66 Year
  Sex: Female
  Weight: 70 kg

DRUGS (2)
  1. METHOTREXATE [Suspect]
     Active Substance: METHOTREXATE
  2. METHOTREXATE [Suspect]
     Active Substance: METHOTREXATE

REACTIONS (17)
  - Toxicity to various agents [Unknown]
  - Overdose [Recovering/Resolving]
  - Mouth ulceration [Recovered/Resolved]
  - Oropharyngeal pain [Unknown]
  - Nausea [Unknown]
  - Vomiting [Unknown]
  - Abdominal pain [Recovered/Resolved]
  - Diarrhoea [Recovered/Resolved]
  - Arthralgia [Not Recovered/Not Resolved]
  - Joint swelling [Not Recovered/Not Resolved]
  - Incorrect dose administered [Unknown]
  - Hand deformity [Unknown]
  - Drug level decreased [Unknown]
  - Bone pain [Unknown]
  - Alanine aminotransferase increased [Recovered/Resolved]
  - Tenosynovitis [Unknown]
  - Oral pain [Not Recovered/Not Resolved]
